FAERS Safety Report 20784472 (Version 3)
Quarter: 2022Q2

REPORT INFORMATION
  Report Type: Report from Study
  Country: EG (occurrence: EG)
  Receive Date: 20220504
  Receipt Date: 20220523
  Transmission Date: 20220721
  Serious: Yes (Other)
  Sender: FDA-Public Use
  Company Number: EG-NOVARTISPH-NVSC2022EG100142

PATIENT
  Age: 72 Year
  Sex: Female

DRUGS (17)
  1. HYRIMOZ [Suspect]
     Active Substance: ADALIMUMAB-ADAZ
     Indication: Rheumatoid arthritis
     Dosage: 1 DOSAGE FORM (EVERY 40 DAYS)
     Route: 058
     Dates: start: 202201, end: 202203
  2. HYRIMOZ [Suspect]
     Active Substance: ADALIMUMAB-ADAZ
     Dosage: 1 DOSAGE FORM (EVERY 40 DAYS)
     Route: 058
     Dates: start: 202204
  3. URALYT [Concomitant]
     Indication: Renal disorder
     Dosage: UNK, TID (ONE SPATULA ON SMALL GLASS OF WATER 3 TIMES DIALY)
     Route: 065
     Dates: start: 202201, end: 202204
  4. FARCOVIT B12 [Concomitant]
     Indication: Liver disorder
     Dosage: UNK, BID
     Route: 065
     Dates: start: 1997
  5. METFORMIN HYDROCHLORIDE\VILDAGLIPTIN [Concomitant]
     Active Substance: METFORMIN HYDROCHLORIDE\VILDAGLIPTIN
     Indication: Diabetes mellitus
     Dosage: UNK, QD (50/500)
     Route: 065
     Dates: start: 202201
  6. GLICLAZIDE [Concomitant]
     Active Substance: GLICLAZIDE
     Indication: Diabetes mellitus
     Dosage: UNK, QD (ONCE AT MORNING)
     Route: 065
     Dates: start: 2018
  7. ANDOURISTAT [Concomitant]
     Indication: Gout
     Dosage: UNK, QD
     Route: 065
     Dates: start: 2015
  8. CORDARONE [Concomitant]
     Active Substance: AMIODARONE HYDROCHLORIDE
     Indication: Cardiac disorder
     Dosage: UNK, QD
     Route: 065
     Dates: start: 202201
  9. LEFLUNOMIDE [Concomitant]
     Active Substance: LEFLUNOMIDE
     Indication: Rheumatoid arthritis
     Dosage: UNK, QD
     Route: 065
     Dates: start: 2020
  10. BISOPROLOL FUMARATE [Concomitant]
     Active Substance: BISOPROLOL FUMARATE
     Indication: Arrhythmic storm
     Dosage: ONCE ON EMPTY STOMACH
     Route: 065
     Dates: start: 2018
  11. INSULIN NOS [Concomitant]
     Active Substance: INSULIN NOS
     Indication: Diabetes mellitus
     Dosage: UNK, PRN
     Route: 065
  12. ROWATINEX [Concomitant]
     Active Substance: HERBALS
     Indication: Renal disorder
     Dosage: 2 DOSAGE FORM, TID
     Route: 065
     Dates: start: 202201
  13. LIBRAX [Concomitant]
     Active Substance: CHLORDIAZEPOXIDE HYDROCHLORIDE\CLIDINIUM BROMIDE
     Indication: Renal disorder
     Dosage: UNK, TID
     Route: 065
     Dates: start: 202201
  14. CALCIUM\VITAMIN D [Concomitant]
     Active Substance: CALCIUM\VITAMIN D
     Indication: Renal disorder
     Dosage: UNK, QD
     Route: 065
     Dates: start: 2021, end: 202201
  15. RIVAROSPIRE [Concomitant]
     Indication: Arrhythmic storm
     Dosage: UNK, QD
     Route: 065
     Dates: start: 202202
  16. ASPIRIN [Concomitant]
     Active Substance: ASPIRIN
     Indication: Arrhythmic storm
     Dosage: UNK, QD
     Route: 065
     Dates: start: 2018
  17. WARFARIN SODIUM [Concomitant]
     Active Substance: WARFARIN SODIUM
     Indication: Arrhythmic storm
     Dosage: UNK, QD
     Route: 065
     Dates: start: 2018, end: 202202

REACTIONS (9)
  - Muscular weakness [Recovering/Resolving]
  - Haemoptysis [Recovered/Resolved]
  - Arthralgia [Recovering/Resolving]
  - Pain in extremity [Recovering/Resolving]
  - Bone pain [Recovering/Resolving]
  - Blood pressure increased [Not Recovered/Not Resolved]
  - Gastrointestinal pain [Not Recovered/Not Resolved]
  - Flatulence [Not Recovered/Not Resolved]
  - Off label use [Unknown]

NARRATIVE: CASE EVENT DATE: 20220101
